FAERS Safety Report 4970760-X (Version None)
Quarter: 2006Q2

REPORT INFORMATION
  Report Type: 
  Country: None (occurrence: None)
  Receive Date: 20060406
  Receipt Date: 20060328
  Transmission Date: 20061013
  Serious: Yes (Death)
  Sender: FDA-Public Use
  Company Number: NLWYE513228MAR06

PATIENT
  Age: 14 Year
  Sex: Male

DRUGS (1)
  1. GEMTUZUMAB OZOGAMICIN (GEMTUZUMAB OZOGAMICIN, INJECTION) [Suspect]
     Indication: ACUTE MYELOID LEUKAEMIA
     Dates: start: 20060101, end: 20060101

REACTIONS (3)
  - BLOOD PRESSURE DECREASED [None]
  - DISEASE PROGRESSION [None]
  - DRUG INEFFECTIVE [None]
